FAERS Safety Report 12942247 (Version 2)
Quarter: 2016Q4

REPORT INFORMATION
  Report Type: Spontaneous
  Country: US (occurrence: US)
  Receive Date: 20161114
  Receipt Date: 20161225
  Transmission Date: 20170207
  Serious: No
  Sender: FDA-Public Use
  Company Number: US-ASTRAZENECA-2016SF13988

PATIENT
  Age: 874 Month
  Sex: Male
  Weight: 120.2 kg

DRUGS (3)
  1. PULMICORT FLEXHALER [Suspect]
     Active Substance: BUDESONIDE
     Route: 055
     Dates: start: 201609
  2. PREDNISONE. [Concomitant]
     Active Substance: PREDNISONE
  3. OPTIMO [Concomitant]
     Indication: NEOPLASM MALIGNANT

REACTIONS (5)
  - Nasopharyngitis [Unknown]
  - Productive cough [Unknown]
  - Product packaging issue [Unknown]
  - Drug ineffective [Unknown]
  - Off label use [Unknown]

NARRATIVE: CASE EVENT DATE: 201609
